FAERS Safety Report 10955018 (Version 1)
Quarter: 2015Q1

REPORT INFORMATION
  Report Type: Report from Study
  Country: BR (occurrence: BR)
  Receive Date: 20150325
  Receipt Date: 20150325
  Transmission Date: 20150721
  Serious: Yes (Hospitalization)
  Sender: FDA-Public Use
  Company Number: BR-EMD SERONO-7154550

PATIENT
  Age: 32 Year
  Sex: Male

DRUGS (3)
  1. PARACETAMOL [Concomitant]
     Active Substance: ACETAMINOPHEN
     Indication: PAIN
  2. DORFLEX [Concomitant]
     Active Substance: CAFFEINE\DIPYRONE\ORPHENADRINE
     Indication: PAIN
  3. REBIF [Suspect]
     Active Substance: INTERFERON BETA-1A
     Indication: RELAPSING-REMITTING MULTIPLE SCLEROSIS
     Dates: start: 20110611

REACTIONS (8)
  - Dysuria [Not Recovered/Not Resolved]
  - Influenza like illness [Not Recovered/Not Resolved]
  - Injection site erythema [Unknown]
  - Central nervous system lesion [Recovered/Resolved]
  - Injection site bruising [Unknown]
  - Injection site pain [Unknown]
  - Muscular weakness [Recovered/Resolved]
  - Injection site nodule [Unknown]

NARRATIVE: CASE EVENT DATE: 201204
